FAERS Safety Report 8607405 (Version 3)
Quarter: 2014Q1

REPORT INFORMATION
  Report Type: Spontaneous
  Country: US (occurrence: US)
  Receive Date: 20120611
  Receipt Date: 20140113
  Transmission Date: 20141002
  Serious: Yes (Hospitalization, Disabling, Other)
  Sender: FDA-Public Use
  Company Number: US-ASTRAZENECA-2012SE34846

PATIENT
  Age: 57 Year
  Sex: Male
  Weight: 78.5 kg

DRUGS (14)
  1. NEXIUM [Suspect]
     Indication: GASTRIC DISORDER
     Dosage: TWICE A DAY
     Route: 048
     Dates: start: 2003, end: 2009
  2. NEXIUM [Suspect]
     Indication: GASTRIC DISORDER
     Route: 048
     Dates: start: 20070125
  3. NEXIUM [Suspect]
     Indication: GASTRIC DISORDER
     Route: 048
     Dates: start: 20111102
  4. OMEPRAZOLE [Suspect]
     Indication: GASTRIC DISORDER
     Route: 048
  5. AMLODIPINE [Concomitant]
     Indication: BLOOD PRESSURE ABNORMAL
     Dosage: ONCE OR TWICE DAILY
  6. PRAVASTATIN [Concomitant]
     Indication: BLOOD CHOLESTEROL ABNORMAL
     Dosage: ONCE OR TWICE DAILY
  7. METOPROLOL [Concomitant]
     Indication: BLOOD PRESSURE ABNORMAL
     Dosage: ONCE OR TWICE DAILY
  8. PLAVIX [Concomitant]
     Dosage: ONCE OR TWICE DAILY
  9. CLONIDINE [Concomitant]
     Indication: BLOOD PRESSURE ABNORMAL
     Dosage: ONCE OR TWICE DAILY
  10. TAMSULOSIN [Concomitant]
     Dosage: ONCE OR TWICE DAILY
  11. TUMS [Concomitant]
  12. ALKA-SELTZER [Concomitant]
  13. PEPTO-BISMOL [Concomitant]
  14. ROLAIDS [Concomitant]

REACTIONS (11)
  - Upper limb fracture [Unknown]
  - Myocardial infarction [Unknown]
  - Gastric disorder [Unknown]
  - Influenza [Unknown]
  - Pancreatic carcinoma [Unknown]
  - Pancreatitis [Unknown]
  - Osteoporosis [Unknown]
  - Multiple fractures [Unknown]
  - Joint injury [Unknown]
  - Arthritis [Unknown]
  - Diabetes mellitus [Unknown]
